FAERS Safety Report 26206987 (Version 2)
Quarter: 2025Q4

REPORT INFORMATION
  Report Type: Other
  Country: EU (occurrence: EU)
  Receive Date: 20251229
  Receipt Date: 20251231
  Transmission Date: 20260118
  Serious: Yes (Other)
  Sender: ASPEN
  Company Number: None

PATIENT

DRUGS (8)
  1. DEXAMETHASONE [Suspect]
     Active Substance: DEXAMETHASONE
     Indication: Headache
     Dosage: UNK
     Route: 065
     Dates: start: 20251106, end: 20251106
  2. LIDOCAINE [Suspect]
     Active Substance: LIDOCAINE
     Indication: Headache
     Dosage: UNK
     Route: 065
     Dates: start: 20251106, end: 20251106
  3. ROPIVACAINE [Suspect]
     Active Substance: ROPIVACAINE
     Indication: Headache
     Dosage: UNK
     Route: 065
     Dates: start: 20251106, end: 20251106
  4. GABAPENTIN [Concomitant]
     Active Substance: GABAPENTIN
     Indication: Product used for unknown indication
     Dosage: 300 MILLIGRAM, 1 DOSE 12 HOURS, 1 COMPRIMIDO 2X/DIA
     Route: 065
  5. DIAZEPAM [Concomitant]
     Active Substance: DIAZEPAM
     Indication: Product used for unknown indication
     Dosage: 2.5 MILLIGRAM, 1 DOSE 12 HOURS, 1 COMPRIMIDO 2X/DIA
     Route: 065
  6. NAPROXEN [Concomitant]
     Active Substance: NAPROXEN
     Indication: Product used for unknown indication
     Dosage: 500 MILLIGRAM, PRN, 1 COMPRIMIDO EM SOS
     Route: 065
  7. TRAMADOL [Concomitant]
     Active Substance: TRAMADOL
     Indication: Product used for unknown indication
     Dosage: 50 MILLIGRAM, PRN, 1 COMPRIMIDO EM SOS
     Route: 065
  8. ACETAMINOPHEN [Concomitant]
     Active Substance: ACETAMINOPHEN
     Indication: Product used for unknown indication
     Dosage: 1000 MILLIGRAM, PRN, 1 COMPRIMIDO EM SOS
     Route: 065

REACTIONS (2)
  - Off label use [Unknown]
  - Laryngeal oedema [Recovered/Resolved]

NARRATIVE: CASE EVENT DATE: 20251106
